FAERS Safety Report 8320459-7 (Version None)
Quarter: 2012Q2

REPORT INFORMATION
  Report Type: 
  Country: None (occurrence: None)
  Receive Date: 20120426
  Receipt Date: 20120426
  Transmission Date: 20120825
  Serious: Yes (Other)
  Sender: FDA-Public Use
  Company Number: None

PATIENT
  Age: 80 Year
  Sex: Female
  Weight: 63.5036 kg

DRUGS (1)
  1. PROLIA [Suspect]
     Indication: OSTEOPOROSIS
     Dosage: 1 SHOT 1 ONCE 6 MO
     Dates: start: 20120209

REACTIONS (6)
  - PAIN [None]
  - SPINAL PAIN [None]
  - INADEQUATE ANALGESIA [None]
  - HERPES ZOSTER [None]
  - PAIN OF SKIN [None]
  - BACK PAIN [None]
